FAERS Safety Report 20392492 (Version 10)
Quarter: 2022Q4

REPORT INFORMATION
  Report Type: Report from Study
  Country: BE (occurrence: BE)
  Receive Date: 20220128
  Receipt Date: 20221122
  Transmission Date: 20230113
  Serious: Yes (Hospitalization)
  Sender: FDA-Public Use
  Company Number: BE-PFIZER INC-202200119333

PATIENT
  Age: 79 Year
  Sex: Male
  Weight: 76.9 kg

DRUGS (45)
  1. DOXORUBICIN HYDROCHLORIDE [Suspect]
     Active Substance: DOXORUBICIN HYDROCHLORIDE
     Indication: Diffuse large B-cell lymphoma stage IV
     Dosage: 50 MILLIGRAM/SQ. METER, 1Q3W, REGIMEN #1
     Route: 042
     Dates: start: 20210916, end: 20211118
  2. DOXORUBICIN HYDROCHLORIDE [Suspect]
     Active Substance: DOXORUBICIN HYDROCHLORIDE
     Dosage: 48 MILLIGRAM/SQ. METER, 1Q3W, REGIMEN #2
     Route: 042
     Dates: start: 20211209, end: 20211209
  3. DOXORUBICIN HYDROCHLORIDE [Suspect]
     Active Substance: DOXORUBICIN HYDROCHLORIDE
     Dosage: 50 MILLIGRAM/SQ. METER, 1Q3W, REGIMEN #3
     Route: 042
     Dates: start: 20211230, end: 20211230
  4. METHYLPREDNISOLONE SODIUM SUCCINATE [Suspect]
     Active Substance: METHYLPREDNISOLONE SODIUM SUCCINATE
     Indication: Diffuse large B-cell lymphoma stage IV
     Dosage: 80 MILLIGRAM, QD (DAY 1-5 OF EACH), REGIMEN#1
     Route: 042
     Dates: start: 20210916, end: 20210917
  5. METHYLPREDNISOLONE SODIUM SUCCINATE [Suspect]
     Active Substance: METHYLPREDNISOLONE SODIUM SUCCINATE
     Dosage: 80 MILLIGRAM, QD (DAY 1-5 OF EACH), REGIMEN#3
     Route: 042
     Dates: start: 20211007, end: 20211007
  6. METHYLPREDNISOLONE SODIUM SUCCINATE [Suspect]
     Active Substance: METHYLPREDNISOLONE SODIUM SUCCINATE
     Dosage: 80 MILLIGRAM, QD (DAY 1-5 OF EACH), REGIMEN #5
     Route: 042
     Dates: start: 20211028, end: 20211028
  7. METHYLPREDNISOLONE SODIUM SUCCINATE [Suspect]
     Active Substance: METHYLPREDNISOLONE SODIUM SUCCINATE
     Dosage: 80 MILLIGRAM, QD (DAY 1-5 OF EACH), REGIMEN #7
     Route: 042
     Dates: start: 20211118, end: 20211118
  8. METHYLPREDNISOLONE SODIUM SUCCINATE [Suspect]
     Active Substance: METHYLPREDNISOLONE SODIUM SUCCINATE
     Dosage: 80 MILLIGRAM, QD (DAY 1-5 OF EACH), REGIMEN #9
     Route: 042
     Dates: start: 20211209, end: 20211209
  9. METHYLPREDNISOLONE SODIUM SUCCINATE [Suspect]
     Active Substance: METHYLPREDNISOLONE SODIUM SUCCINATE
     Dosage: 64 MILLIGRAM, QD (DAY 1-5 OF EACH), REGIMEN #11
     Route: 042
     Dates: start: 20211230, end: 20211230
  10. METHYLPREDNISOLONE [Suspect]
     Active Substance: METHYLPREDNISOLONE
     Indication: Diffuse large B-cell lymphoma stage IV
     Dosage: 80 MG, QD (DAY 1-5 OF EACH), REGIMEN #2
     Route: 048
     Dates: start: 20210918, end: 20210920
  11. METHYLPREDNISOLONE [Suspect]
     Active Substance: METHYLPREDNISOLONE
     Dosage: 80 MG, QD (DAY 1-5 OF EACH), REGIMEN #4
     Route: 048
     Dates: start: 20211008, end: 20211011
  12. METHYLPREDNISOLONE [Suspect]
     Active Substance: METHYLPREDNISOLONE
     Dosage: 80 MG, QD (DAY 1-5 OF EACH), REGIMEN #6
     Route: 048
     Dates: start: 20211029, end: 20211101
  13. METHYLPREDNISOLONE [Suspect]
     Active Substance: METHYLPREDNISOLONE
     Dosage: 80 MG, QD (DAY 1-5 OF EACH), REGIMEN #8
     Route: 048
     Dates: start: 20211119, end: 20211122
  14. METHYLPREDNISOLONE [Suspect]
     Active Substance: METHYLPREDNISOLONE
     Dosage: 64 MG, QD (DAY 1-5 OF EACH), REGIMEN #10
     Route: 048
     Dates: start: 20211210, end: 20211213
  15. METHYLPREDNISOLONE [Suspect]
     Active Substance: METHYLPREDNISOLONE
     Dosage: 64 MG, QD (DAY 1-5 OF EACH), REGIMEN #12
     Route: 048
     Dates: start: 20211231, end: 20220103
  16. RITUXIMAB [Suspect]
     Active Substance: RITUXIMAB
     Indication: Diffuse large B-cell lymphoma stage IV
     Dosage: 375 MILLIGRAM/SQ. METER, 1Q3W, REGIMEN #1
     Route: 042
     Dates: start: 20210916, end: 20211230
  17. EPCORITAMAB [Suspect]
     Active Substance: EPCORITAMAB
     Indication: Diffuse large B-cell lymphoma stage IV
     Dosage: PRIMING DOSE: 0.16 MG, SINGLE, REGIMEN#1
     Route: 058
     Dates: start: 20210917, end: 20210917
  18. EPCORITAMAB [Suspect]
     Active Substance: EPCORITAMAB
     Dosage: INTERMEDIATE DOSE: 0.8 MG, SINGLE, REGIMEN#2
     Route: 058
     Dates: start: 20210923, end: 20210923
  19. EPCORITAMAB [Suspect]
     Active Substance: EPCORITAMAB
     Dosage: FULL DOSE (CYCLE 1-4): 48 MG, WEEKLY, REGIMEN#3
     Route: 058
     Dates: start: 20211001, end: 20211202
  20. EPCORITAMAB [Suspect]
     Active Substance: EPCORITAMAB
     Dosage: FULL DOSE (CYCLE 5): 48 MG, EVERY 3 WEEKS, REGIMEN#4
     Route: 058
     Dates: start: 20211209
  21. CYCLOPHOSPHAMIDE [Suspect]
     Active Substance: CYCLOPHOSPHAMIDE
     Indication: Diffuse large B-cell lymphoma stage IV
     Dosage: 750 MILLIGRAM/SQ. METER, 1Q3W, REGIMEN #1
     Route: 042
     Dates: start: 20210916, end: 20211118
  22. CYCLOPHOSPHAMIDE [Suspect]
     Active Substance: CYCLOPHOSPHAMIDE
     Dosage: 562.5 MILLIGRAM/SQ. METER, 1Q3W, REGIMEN #2
     Route: 042
     Dates: start: 20211209, end: 20211209
  23. CYCLOPHOSPHAMIDE [Suspect]
     Active Substance: CYCLOPHOSPHAMIDE
     Dosage: 750 MILLIGRAM/SQ. METER, 1Q3W, REGIMEN #3
     Route: 042
     Dates: start: 20211230, end: 20211230
  24. VINCRISTINE [Suspect]
     Active Substance: VINCRISTINE
     Indication: Diffuse large B-cell lymphoma stage IV
     Dosage: 1.4 MILLIGRAM/SQ. METER, 1Q3W, REGIMEN #1
     Route: 042
     Dates: start: 20210916, end: 20211230
  25. CETIRIZINE [Concomitant]
     Active Substance: CETIRIZINE HYDROCHLORIDE
     Indication: Product used for unknown indication
     Dosage: 10 UG
     Route: 048
     Dates: start: 20211209, end: 20211209
  26. CETIRIZINE [Concomitant]
     Active Substance: CETIRIZINE HYDROCHLORIDE
     Indication: Prophylaxis
     Dosage: 10 MG
     Route: 048
     Dates: start: 20211230, end: 20211230
  27. ACETAMINOPHEN [Concomitant]
     Active Substance: ACETAMINOPHEN
     Indication: Prophylaxis
     Dosage: UNK
     Dates: start: 202108
  28. ACETAMINOPHEN [Concomitant]
     Active Substance: ACETAMINOPHEN
     Dosage: 1 G
     Route: 048
     Dates: start: 20211209, end: 20211209
  29. ACETAMINOPHEN [Concomitant]
     Active Substance: ACETAMINOPHEN
     Dosage: 1 G
     Dates: start: 20211230, end: 20211230
  30. ACYCLOVIR [Concomitant]
     Active Substance: ACYCLOVIR
     Indication: Prophylaxis
     Dosage: UNK
     Dates: start: 20210904
  31. BISOPROLOL [Concomitant]
     Active Substance: BISOPROLOL
     Indication: Prophylaxis
     Dosage: UNK
     Dates: start: 20211118
  32. CALCIUM\CHOLECALCIFEROL [Concomitant]
     Active Substance: CALCIUM\CHOLECALCIFEROL
     Indication: Prophylaxis
     Dosage: UNK
     Dates: start: 20210908
  33. COTRIMOXAZOLE [Concomitant]
     Active Substance: SULFAMETHOXAZOLE\TRIMETHOPRIM
     Indication: Prophylaxis
     Dosage: UNK
     Dates: start: 20210901
  34. FOLIC ACID [Concomitant]
     Active Substance: FOLIC ACID
     Indication: Prophylaxis
     Dosage: UNK
     Dates: start: 20210902
  35. INSULIN PORK\INSULIN PURIFIED PORK [Concomitant]
     Active Substance: INSULIN PORK\INSULIN PURIFIED PORK
     Indication: Prophylaxis
     Dosage: UNK
     Dates: start: 20211007, end: 20220110
  36. LIPEGFILGRASTIM [Concomitant]
     Active Substance: LIPEGFILGRASTIM
     Indication: Prophylaxis
     Dosage: UNK
     Dates: start: 20211209, end: 20211230
  37. MOVICOL [Concomitant]
     Active Substance: POLYETHYLENE GLYCOL 3350\POTASSIUM CHLORIDE\SODIUM BICARBONATE\SODIUM CHLORIDE
     Indication: Prophylaxis
     Dosage: UNK
     Dates: start: 20210829
  38. ONDANSETRON [Concomitant]
     Active Substance: ONDANSETRON
     Indication: Prophylaxis
     Dosage: UNK
     Dates: start: 20210917, end: 20211230
  39. PANTOMED [DEXPANTHENOL] [Concomitant]
     Indication: Prophylaxis
     Dosage: UNK
     Dates: start: 202108
  40. QUETIAPINE [Concomitant]
     Active Substance: QUETIAPINE
     Indication: Prophylaxis
     Dosage: UNK
     Dates: start: 20211205
  41. RAMIPRIL [Concomitant]
     Active Substance: RAMIPRIL
     Indication: Prophylaxis
     Dosage: UNK
     Dates: start: 20210901
  42. TRAMADOL [Concomitant]
     Active Substance: TRAMADOL
     Indication: Prophylaxis
     Dosage: UNK
     Dates: start: 20210828
  43. CIPROFLOXACIN [Concomitant]
     Active Substance: CIPROFLOXACIN
     Dosage: UNK
     Dates: start: 20220110, end: 20220110
  44. DIFLUCAN [Concomitant]
     Active Substance: FLUCONAZOLE
     Dosage: UNK
     Dates: start: 20211130, end: 20220120
  45. DICLOFENAC [Concomitant]
     Active Substance: DICLOFENAC
     Dosage: UNK
     Dates: start: 202112, end: 202201

REACTIONS (1)
  - Enterocolitis infectious [Recovered/Resolved]

NARRATIVE: CASE EVENT DATE: 20220105
